FAERS Safety Report 21498617 (Version 1)
Quarter: 2022Q4

REPORT INFORMATION
  Report Type: Spontaneous
  Country: BR (occurrence: BR)
  Receive Date: 20221024
  Receipt Date: 20221024
  Transmission Date: 20230113
  Serious: Yes (Hospitalization)
  Sender: FDA-Public Use
  Company Number: BR-CHEPLA-2022009264

PATIENT
  Age: 66 Year
  Sex: Male
  Weight: 96 kg

DRUGS (3)
  1. CLONAZEPAM [Suspect]
     Active Substance: CLONAZEPAM
     Indication: Anxiety
     Dosage: MORE THAN 20 YEARS AGO??DAILY DOSE: 1 DOSAGE FORM
     Route: 060
  2. CLONAZEPAM [Suspect]
     Active Substance: CLONAZEPAM
     Indication: Anxiety
     Dosage: MORE THAN 20 YEARS AGO?DAILY DOSE: 1 DOSAGE FORM
     Route: 048
  3. BENICAR [Concomitant]
     Active Substance: OLMESARTAN MEDOXOMIL
     Indication: Mechanical ventilation
     Dosage: A LOG TIME AGO (NOT INFORMED)
     Route: 048

REACTIONS (10)
  - Abscess [Recovered/Resolved]
  - Goitre [Recovered/Resolved]
  - Dysgeusia [Recovered/Resolved]
  - Nausea [Recovered/Resolved]
  - Abdominal pain upper [Recovered/Resolved]
  - Product solubility abnormal [Not Recovered/Not Resolved]
  - Malaise [Recovered/Resolved]
  - Product use issue [Not Recovered/Not Resolved]
  - Wrong technique in product usage process [Recovered/Resolved]
  - Retching [Recovered/Resolved]

NARRATIVE: CASE EVENT DATE: 20221012
